FAERS Safety Report 6126020-7 (Version None)
Quarter: 2009Q1

REPORT INFORMATION
  Report Type: 
  Country: None (occurrence: None)
  Receive Date: 20090320
  Receipt Date: 20090318
  Transmission Date: 20090719
  Serious: Yes (Hospitalization)
  Sender: FDA-Public Use
  Company Number: CH-EISAI MEDICAL RESEARCH-E2020-04309-SPO-CH

PATIENT
  Age: 86 Year
  Sex: Female

DRUGS (8)
  1. ARICEPT [Suspect]
     Indication: DEMENTIA ALZHEIMER'S TYPE
     Route: 048
     Dates: start: 20071129
  2. BELOC ZOK [Suspect]
     Indication: ACUTE MYOCARDIAL INFARCTION
     Route: 048
     Dates: start: 20071105
  3. ASPIRIN [Suspect]
     Indication: DRUG USE FOR UNKNOWN INDICATION
     Route: 048
     Dates: start: 20070101
  4. COVERSUM [Suspect]
     Indication: ESSENTIAL HYPERTENSION
     Route: 048
     Dates: start: 20071218, end: 20080624
  5. EPRIL SUBMITE [Suspect]
     Indication: ESSENTIAL HYPERTENSION
     Route: 048
     Dates: start: 20071105, end: 20071108
  6. NITRODERM [Concomitant]
     Route: 061
     Dates: start: 20071105, end: 20071220
  7. ANXIOLIT [Concomitant]
     Route: 048
     Dates: start: 20071212
  8. SORTIS [Concomitant]
     Indication: HYPERCHOLESTEROLAEMIA
     Route: 048
     Dates: start: 20071105, end: 20071206

REACTIONS (2)
  - PSEUDOLYMPHOMA [None]
  - RASH PAPULOSQUAMOUS [None]
